FAERS Safety Report 9148840 (Version 1)
Quarter: 2013Q1

REPORT INFORMATION
  Report Type: Spontaneous
  Country: IT (occurrence: IT)
  Receive Date: 20130308
  Receipt Date: 20130308
  Transmission Date: 20140127
  Serious: Yes (Hospitalization)
  Sender: FDA-Public Use
  Company Number: IT-SANOFI-AVENTIS-2013SA020378

PATIENT
  Age: 25 Year
  Sex: Female

DRUGS (5)
  1. TRENTAL [Suspect]
     Indication: SUICIDE ATTEMPT
     Route: 048
     Dates: start: 20130223, end: 20130223
  2. TACHIPIRINA [Suspect]
     Indication: SUICIDE ATTEMPT
     Dosage: STRENGTH: 500 MG
     Route: 048
     Dates: start: 20130223, end: 20130223
  3. EFFERALGAN [Suspect]
     Indication: SUICIDE ATTEMPT
     Dosage: STRENGTH: 1000 MG
     Route: 048
     Dates: start: 20130223, end: 20130223
  4. FLOMAX [Suspect]
     Indication: SUICIDE ATTEMPT
     Dosage: STRENGTH: 350 MG
     Route: 048
     Dates: start: 20130223, end: 20130223
  5. ASPIRINA [Suspect]
     Indication: SUICIDE ATTEMPT
     Dosage: STRENGTH: 400 MG
     Route: 048
     Dates: start: 20130223, end: 20130223

REACTIONS (1)
  - Toxicity to various agents [Recovering/Resolving]
